FAERS Safety Report 9252673 (Version 1)
Quarter: 2013Q2

REPORT INFORMATION
  Report Type: Spontaneous
  Country: FR (occurrence: FR)
  Receive Date: 20130424
  Receipt Date: 20130424
  Transmission Date: 20140414
  Serious: Yes (Other)
  Sender: FDA-Public Use
  Company Number: FR-GLAXOSMITHKLINE-B0884100A

PATIENT
  Age: 59 Year
  Sex: Male

DRUGS (5)
  1. SERETIDE [Suspect]
     Indication: ASTHMA
     Dosage: 1PUFF TWICE PER DAY
     Route: 055
     Dates: start: 201210
  2. VENTOLIN 100 [Concomitant]
     Indication: ASTHMA
     Route: 055
  3. TEGRETOL [Concomitant]
     Route: 065
  4. CARBAMAZEPIN [Concomitant]
     Route: 065
  5. INEGY [Concomitant]
     Route: 065

REACTIONS (2)
  - Osteonecrosis [Not Recovered/Not Resolved]
  - Arthralgia [Unknown]
